FAERS Safety Report 6007205-7 (Version None)
Quarter: 2008Q4

REPORT INFORMATION
  Report Type: 
  Country: None (occurrence: None)
  Receive Date: 20081217
  Receipt Date: 20080218
  Transmission Date: 20090506
  Serious: No
  Sender: FDA-Public Use
  Company Number: US-ASTRAZENECA-2008UW03263

PATIENT
  Age: 54 Year
  Sex: Male
  Weight: 73.9 kg

DRUGS (1)
  1. CRESTOR [Suspect]
     Route: 048
     Dates: start: 20080115

REACTIONS (3)
  - CHEST DISCOMFORT [None]
  - ERUCTATION [None]
  - FLATULENCE [None]
